FAERS Safety Report 6958626-7 (Version None)
Quarter: 2010Q3

REPORT INFORMATION
  Report Type: 
  Country: None (occurrence: None)
  Receive Date: 20100827
  Receipt Date: 20100827
  Transmission Date: 20110219
  Serious: Yes (Other)
  Sender: FDA-Public Use
  Company Number: None

PATIENT
  Sex: Female
  Weight: 84.369 kg

DRUGS (1)
  1. ACTOS [Suspect]
     Dosage: 1 TABLET EVERY DAY
     Dates: start: 20040101

REACTIONS (2)
  - TREMOR [None]
  - WEIGHT INCREASED [None]
